FAERS Safety Report 4872104-0 (Version None)
Quarter: 2005Q4

REPORT INFORMATION
  Report Type: 
  Country: None (occurrence: None)
  Receive Date: 20051230
  Receipt Date: 20051217
  Transmission Date: 20060501
  Serious: Yes (Other)
  Sender: FDA-Public Use
  Company Number: 2005170069

PATIENT
  Sex: Male
  Weight: 88.4514 kg

DRUGS (4)
  1. VIAGRA [Suspect]
     Indication: ERECTILE DYSFUNCTION
     Dosage: 50 MG (50 MG, 1 AS NECESSARY), ORAL
     Route: 048
  2. DYAZIDE [Concomitant]
  3. ATENOLOL [Concomitant]
  4. VICODIN [Concomitant]

REACTIONS (4)
  - DRUG INEFFECTIVE [None]
  - GOUT [None]
  - JOINT WARMTH [None]
  - SURGERY [None]
